FAERS Safety Report 9754956 (Version 1)
Quarter: 2013Q4

REPORT INFORMATION
  Report Type: Spontaneous
  Country: US (occurrence: US)
  Receive Date: 20131213
  Receipt Date: 20131213
  Transmission Date: 20140711
  Serious: No
  Sender: FDA-Public Use
  Company Number: US-GLAXOSMITHKLINE-A1009135A

PATIENT
  Age: 77 Year
  Sex: Male

DRUGS (1)
  1. NICODERM CQ 14MG [Suspect]
     Indication: PRODUCT USED FOR UNKNOWN INDICATION
     Dates: start: 20130106, end: 20130113

REACTIONS (1)
  - Nightmare [Recovered/Resolved]
